FAERS Safety Report 13873925 (Version 1)
Quarter: 2017Q3

REPORT INFORMATION
  Report Type: Spontaneous
  Country: US (occurrence: US)
  Receive Date: 20170816
  Receipt Date: 20170816
  Transmission Date: 20171127
  Serious: No
  Sender: FDA-Public Use
  Company Number: US-PFIZER INC-2017348106

PATIENT
  Age: 14 Year
  Sex: Male

DRUGS (4)
  1. PROAIR HFA [Concomitant]
     Active Substance: ALBUTEROL SULFATE
     Indication: WHEEZING
     Dosage: AS NEEDED (INHALE 2 PUFFS INTO THE LUNGS EVERY 4 (FOUR) HOURS AS NEEDED )
  2. XYNTHA [Suspect]
     Active Substance: ANTIHEMOPHILIC FACTOR, HUMAN RECOMBINANT RESIDUES 743-1636 DELETED
     Dosage: 3000 IU, ALTERNATE DAY (INFUSE 3000 UNITS EVERY OTHER DAY)
     Dates: start: 20170601
  3. XYNTHA [Suspect]
     Active Substance: ANTIHEMOPHILIC FACTOR, HUMAN RECOMBINANT RESIDUES 743-1636 DELETED
     Indication: FACTOR VIII DEFICIENCY
     Dosage: 2388 IU, ALTERNATE DAY (INJECT 2,388 INT^L UNITS INTO THE VEIN EVERY OTHER DAY)
  4. SODIUM CHLORIDE. [Concomitant]
     Active Substance: SODIUM CHLORIDE
     Dosage: 5 ML, UNK

REACTIONS (4)
  - Repetitive strain injury [Unknown]
  - Product use in unapproved indication [Unknown]
  - Muscle strain [Unknown]
  - Back pain [Unknown]
